FAERS Safety Report 6181964-5 (Version None)
Quarter: 2009Q2

REPORT INFORMATION
  Report Type: 
  Country: None (occurrence: None)
  Receive Date: 20090505
  Receipt Date: 20090420
  Transmission Date: 20091009
  Serious: Yes (Other)
  Sender: FDA-Public Use
  Company Number: 2009S1007041

PATIENT
  Age: 55 Year
  Sex: Male
  Weight: 88.4514 kg

DRUGS (3)
  1. CETIRIZINE HCL [Suspect]
     Indication: HYPERSENSITIVITY
     Dosage: 10 MG; DAILY; ORAL
     Route: 048
     Dates: start: 20090406, end: 20090411
  2. VITAMIN C (CON.) [Concomitant]
  3. VITAMIN B /01753401/ (CON.) [Concomitant]

REACTIONS (8)
  - BLOOD CREATINE INCREASED [None]
  - BLOOD PRESSURE INCREASED [None]
  - CHEST PAIN [None]
  - COLD SWEAT [None]
  - FIBRIN D DIMER INCREASED [None]
  - HYPERHIDROSIS [None]
  - LABORATORY TEST ABNORMAL [None]
  - WHITE BLOOD CELL COUNT INCREASED [None]
